FAERS Safety Report 5886855-2 (Version None)
Quarter: 2008Q3

REPORT INFORMATION
  Report Type: 
  Country: None (occurrence: None)
  Receive Date: 20080917
  Receipt Date: 20080905
  Transmission Date: 20090109
  Serious: Yes (Hospitalization, Other)
  Sender: FDA-Public Use
  Company Number: US-ELI_LILLY_AND_COMPANY-US200808002843

PATIENT
  Age: 45 Year
  Sex: Female
  Weight: 65.306 kg

DRUGS (16)
  1. EVISTA [Suspect]
     Indication: OSTEOPOROSIS
     Dosage: 60 MG, DAILY (1/D)
  2. DICYCLOMINE [Concomitant]
     Dosage: 10 MG, AS NEEDED
     Route: 065
  3. LAMISIL [Concomitant]
     Dosage: UNK, AS NEEDED
     Route: 065
  4. PROPARACAINE HCL [Concomitant]
     Dosage: UNK, AS NEEDED
     Route: 065
  5. DEMEROL [Concomitant]
     Dosage: 50 MG, AS NEEDED
     Route: 065
  6. ACEBUTOLOL [Concomitant]
     Dosage: 200 MG, DAILY (1/D)
     Route: 065
  7. DIFLUCAN [Concomitant]
     Dosage: 150 MG, DAILY (1/D)
     Route: 065
  8. SUDAFED 12 HOUR [Concomitant]
     Dosage: 80 MG, AS NEEDED
     Route: 065
  9. FISH OIL [Concomitant]
     Dosage: UNK, UNKNOWN
     Route: 065
  10. PREVACID [Concomitant]
     Dosage: 30 MG, DAILY (1/D)
     Route: 065
  11. ARMOUR THYROID [Concomitant]
     Dosage: 90 MG, DAILY (1/D)
     Route: 065
  12. FELDENE [Concomitant]
     Dosage: 20 MG, DAILY (1/D)
     Route: 065
  13. ZANTAC [Concomitant]
     Dosage: 150 MG, 2/D
     Route: 065
  14. DETROL [Concomitant]
     Dosage: 2 MG, 2/D
     Route: 065
  15. HORMONES NOS [Concomitant]
     Dosage: UNK, UNKNOWN
     Route: 065
  16. PATANOL [Concomitant]
     Dosage: UNK, DAILY (1/D)
     Route: 065

REACTIONS (8)
  - CYST [None]
  - HOT FLUSH [None]
  - INTRACRANIAL PRESSURE INCREASED [None]
  - LOSS OF CONSCIOUSNESS [None]
  - MIGRAINE [None]
  - OVARIAN CYST [None]
  - TRANSIENT ISCHAEMIC ATTACK [None]
  - VISUAL IMPAIRMENT [None]
